FAERS Safety Report 9252684 (Version 2)
Quarter: 2013Q2

REPORT INFORMATION
  Report Type: Spontaneous
  Country: NO (occurrence: NO)
  Receive Date: 20130424
  Receipt Date: 20130620
  Transmission Date: 20140414
  Serious: Yes (Congenital Anomaly)
  Sender: FDA-Public Use
  Company Number: NO-TEVA-398258ISR

PATIENT
  Age: 0 Year
  Sex: Male

DRUGS (2)
  1. TRAMADOL [Suspect]
     Indication: BACK PAIN
     Dosage: 1 TABLET UP TO 4 TIMES A DAY
     Route: 064
  2. PARACETAMOL [Concomitant]
     Indication: BACK PAIN
     Route: 048

REACTIONS (3)
  - Anal atresia [Recovering/Resolving]
  - Spine malformation [Unknown]
  - Congenital anomaly [Recovering/Resolving]
